FAERS Safety Report 10595576 (Version 2)
Quarter: 2015Q1

REPORT INFORMATION
  Report Type: Spontaneous
  Country: FR (occurrence: None)
  Receive Date: 20141118
  Receipt Date: 20150206
  Transmission Date: 20150720
  Serious: Yes (Life-Threatening, Hospitalization, Other)
  Sender: FDA-Public Use
  Company Number: FR2014GSK017689

PATIENT
  Age: 48 Year
  Sex: Male
  Weight: 82.5 kg

DRUGS (3)
  1. INTELENCE (ETRAVIRINE) TABLET [Concomitant]
  2. KIVEXA [Suspect]
     Active Substance: ABACAVIR SULFATE\LAMIVUDINE
     Indication: HIV INFECTION
     Dosage: 1 DF, 1D, ORAL
     Route: 048
     Dates: start: 20141023
  3. ISENTRESS (RALTEGRAVIR) TABLET [Concomitant]

REACTIONS (6)
  - Chest pain [None]
  - Myocardial infarction [None]
  - Haemoglobin decreased [None]
  - Hypokinesia [None]
  - Oesophagitis [None]
  - Haematemesis [None]

NARRATIVE: CASE EVENT DATE: 20140623
